FAERS Safety Report 11752136 (Version 1)
Quarter: 2015Q4

REPORT INFORMATION
  Report Type: Spontaneous
  Country: US (occurrence: US)
  Receive Date: 20151118
  Receipt Date: 20151118
  Transmission Date: 20160304
  Serious: No
  Sender: FDA-Public Use
  Company Number: US-PRESTIUM-2015RN000009

PATIENT

DRUGS (4)
  1. VITAMIN C [Concomitant]
     Active Substance: ASCORBIC ACID
     Dosage: UNK
  2. SYNTHROID [Concomitant]
     Active Substance: LEVOTHYROXINE SODIUM
     Dosage: UNK
  3. DENAVIR [Suspect]
     Active Substance: PENCICLOVIR
     Indication: ORAL HERPES
     Dosage: 1 APPLICATION EVERY 2 HOURS FOR 4 DAYS
     Route: 061
     Dates: start: 20150203, end: 20150206
  4. THERAPEUTIC MULTIVITAMIN           /01824401/ [Concomitant]
     Dosage: UNK, QD

REACTIONS (3)
  - Drug ineffective [Unknown]
  - Lip blister [Unknown]
  - Scab [Unknown]

NARRATIVE: CASE EVENT DATE: 20150204
